FAERS Safety Report 5243094-6 (Version None)
Quarter: 2007Q1

REPORT INFORMATION
  Report Type: 
  Country: None (occurrence: None)
  Receive Date: 20070215
  Receipt Date: 20070202
  Transmission Date: 20070707
  Serious: Yes (Disabling)
  Sender: FDA-Public Use
  Company Number: 2006SP001879

PATIENT
  Age: 51 Year
  Sex: Male
  Weight: 87.5442 kg

DRUGS (13)
  1. REBETOL [Suspect]
     Indication: HEPATITIS C
     Dosage: 600 MG;BID;PO
     Route: 048
     Dates: start: 20010201, end: 20020201
  2. INTRON A [Suspect]
     Indication: HEPATITIS C
     Dosage: TIW;SC
     Route: 058
     Dates: start: 20010201, end: 20020201
  3. NEURONTIN (CON.) [Concomitant]
  4. CYMBALTA (CON.) [Concomitant]
  5. VICODIN (CON.) [Concomitant]
  6. ETODOLAC (CON.) [Concomitant]
  7. TRAZODONE (CON.) [Concomitant]
  8. ATENOLOL (CON.) [Concomitant]
  9. PRILOSEC (CON.) [Concomitant]
  10. LODINE (CON.) [Concomitant]
  11. EFFEXOR XR (CON.) [Concomitant]
  12. CELEBREX (CON.) [Concomitant]
  13. ULTRAM (CON.) [Concomitant]

REACTIONS (15)
  - DEPRESSION [None]
  - DRUG INEFFECTIVE [None]
  - ECCHYMOSIS [None]
  - FALL [None]
  - FIBROMYALGIA [None]
  - FOREIGN BODY TRAUMA [None]
  - LOSS OF EMPLOYMENT [None]
  - MOBILITY DECREASED [None]
  - MUSCLE SPASMS [None]
  - MUSCULOSKELETAL PAIN [None]
  - NAIL DISORDER [None]
  - ONYCHOMYCOSIS [None]
  - TINEA INFECTION [None]
  - TINEA PEDIS [None]
  - VISUAL ACUITY REDUCED [None]
